FAERS Safety Report 7766792-9 (Version None)
Quarter: 2011Q3

REPORT INFORMATION
  Report Type: 
  Country: None (occurrence: None)
  Receive Date: 20110922
  Receipt Date: 20110118
  Transmission Date: 20111222
  Serious: Yes (Other)
  Sender: FDA-Public Use
  Company Number: US-ASTRAZENECA-2011SE03377

PATIENT
  Age: 53 Year
  Sex: Female

DRUGS (1)
  1. SEROQUEL XR [Suspect]
     Route: 048

REACTIONS (7)
  - SEDATION [None]
  - FEELING ABNORMAL [None]
  - SUICIDAL IDEATION [None]
  - DEPRESSION [None]
  - HYPERSOMNIA [None]
  - BIPOLAR I DISORDER [None]
  - IRRITABILITY [None]
